FAERS Safety Report 18594878 (Version 1)
Quarter: 2020Q4

REPORT INFORMATION
  Report Type: Spontaneous
  Country: US (occurrence: US)
  Receive Date: 20201208
  Receipt Date: 20201208
  Transmission Date: 20210114
  Serious: Yes (Death, Other)
  Sender: FDA-Public Use
  Company Number: None

PATIENT
  Age: 75 Year
  Sex: Female

DRUGS (1)
  1. AUBAGIO [Suspect]
     Active Substance: TERIFLUNOMIDE
     Indication: MULTIPLE SCLEROSIS
     Route: 048
     Dates: start: 20160208, end: 20201119

REACTIONS (8)
  - Respiratory failure [None]
  - Malaise [None]
  - Asthenia [None]
  - Dyspnoea [None]
  - Acute respiratory distress syndrome [None]
  - Pyrexia [None]
  - COVID-19 [None]
  - Pneumothorax [None]

NARRATIVE: CASE EVENT DATE: 20201208
